FAERS Safety Report 5529656-7 (Version None)
Quarter: 2007Q4

REPORT INFORMATION
  Report Type: 
  Country: None (occurrence: None)
  Receive Date: 20071129
  Receipt Date: 20071123
  Transmission Date: 20080405
  Serious: Yes (Other)
  Sender: FDA-Public Use
  Company Number: JP-SANOFI-SYNTHELABO-F01200701533

PATIENT
  Sex: Male

DRUGS (8)
  1. PRIMPERAN INJ [Concomitant]
     Dates: start: 20070912, end: 20070930
  2. TEGRETOL [Concomitant]
     Dates: start: 20070912, end: 20070930
  3. FENTANYL [Concomitant]
     Dates: start: 20070911
  4. HYPEN [Concomitant]
     Dates: start: 20070911
  5. CALCIUM LEVOFOLINATE [Suspect]
     Route: 042
     Dates: start: 20071026, end: 20071027
  6. FLUOROURACIL [Suspect]
     Route: 042
     Dates: start: 20071026, end: 20071027
  7. BEVACIZUMAB [Suspect]
     Route: 042
     Dates: start: 20071026, end: 20071026
  8. OXALIPLATIN [Suspect]
     Indication: RECTAL CANCER RECURRENT
     Route: 042
     Dates: start: 20071026, end: 20071026

REACTIONS (1)
  - AORTIC DISSECTION [None]
